FAERS Safety Report 9387468 (Version 1)
Quarter: 2013Q3

REPORT INFORMATION
  Report Type: Spontaneous
  Country: US (occurrence: None)
  Receive Date: 20130702
  Receipt Date: 20130702
  Transmission Date: 20140515
  Serious: Yes (Hospitalization, Other)
  Sender: FDA-Public Use
  Company Number: 2013P1010618

PATIENT
  Age: 67 Year
  Sex: Female

DRUGS (2)
  1. INFUMORPH [Suspect]
  2. DILAUDID [Suspect]

REACTIONS (13)
  - Device dislocation [None]
  - Device battery issue [None]
  - Drug withdrawal syndrome [None]
  - Blood pressure decreased [None]
  - Organ failure [None]
  - Aphagia [None]
  - Malaise [None]
  - Dysphagia [None]
  - Weight decreased [None]
  - Pituitary tumour [None]
  - Adrenal disorder [None]
  - Visual acuity reduced [None]
  - Medical device site reaction [None]
